FAERS Safety Report 7123890-0 (Version None)
Quarter: 2010Q4

REPORT INFORMATION
  Report Type: 
  Country: None (occurrence: None)
  Receive Date: 20101125
  Receipt Date: 20101104
  Transmission Date: 20110411
  Serious: Yes (Other)
  Sender: FDA-Public Use
  Company Number: GB-AMGEN-GBRCT2010004144

PATIENT

DRUGS (12)
  1. ETANERCEPT [Suspect]
     Indication: RHEUMATOID ARTHRITIS
     Dosage: 50 MG, 2 TIMES/WK
     Dates: start: 20060510
  2. PREDNISOLONE [Concomitant]
  3. ATENOLOL [Concomitant]
  4. BENORYLATE [Concomitant]
  5. CALCIUM [Concomitant]
  6. FENTANYL [Concomitant]
  7. FRUSEMIDE [Concomitant]
  8. GAVISCON [Concomitant]
  9. IRBESARTAN [Concomitant]
  10. METOLAZONE [Concomitant]
  11. PROCHLORPERAZINE [Concomitant]
  12. VISCOTEARS [Concomitant]

REACTIONS (1)
  - TRANSIENT ISCHAEMIC ATTACK [None]
